FAERS Safety Report 8359915-4 (Version None)
Quarter: 2012Q2

REPORT INFORMATION
  Report Type: 
  Country: None (occurrence: None)
  Receive Date: 20120515
  Receipt Date: 20120510
  Transmission Date: 20120825
  Serious: Yes (Hospitalization)
  Sender: FDA-Public Use
  Company Number: FR-PFIZER INC-2012114021

PATIENT
  Age: 80 Year
  Sex: Female

DRUGS (10)
  1. ATHYMIL [Concomitant]
     Indication: DEPRESSION
     Dosage: 10 MG, 1X/DAY
     Route: 048
     Dates: end: 20120406
  2. NEXIUM [Concomitant]
     Dosage: 40 MG, 1X/DAY
     Route: 048
     Dates: end: 20120406
  3. DURAGESIC-100 [Concomitant]
     Indication: METASTATIC PAIN
     Dosage: 1 DF/72 H
     Route: 003
     Dates: start: 20120402
  4. FERROUS SULFATE TAB [Concomitant]
     Dosage: 80 MG, 2X/DAY
     Route: 048
     Dates: end: 20120406
  5. INNOHEP [Suspect]
     Dosage: 1 DF, 1X/DAY
     Route: 058
     Dates: end: 20120406
  6. MORPHINE SULFATE [Concomitant]
     Indication: METASTATIC PAIN
     Dosage: 1 DF 6X/DAY
     Route: 048
     Dates: start: 20120301, end: 20120406
  7. AMLODIPINE/VALSARTAN [Concomitant]
     Indication: HYPERTENSION
     Dosage: 1 DF, 1X/DAY
     Route: 048
     Dates: end: 20120406
  8. SUTENT [Suspect]
     Indication: METASTATIC RENAL CELL CARCINOMA
     Dosage: 25 MG, 1X/DAY
     Route: 048
     Dates: end: 20120406
  9. XANAX [Concomitant]
     Indication: DEPRESSION
     Dosage: 0.25 MG, 1X/DAY
     Route: 048
     Dates: end: 20120406
  10. IMOVANE [Concomitant]
     Indication: DEPRESSION
     Dosage: 7.5 MG, 1X/DAY
     Route: 048
     Dates: end: 20120406

REACTIONS (3)
  - DEPRESSED LEVEL OF CONSCIOUSNESS [None]
  - COMA [None]
  - CEREBRAL HAEMORRHAGE [None]
